FAERS Safety Report 5911170-8 (Version None)
Quarter: 2008Q4

REPORT INFORMATION
  Report Type: 
  Country: None (occurrence: None)
  Receive Date: 20081007
  Receipt Date: 20080421
  Transmission Date: 20090506
  Serious: No
  Sender: FDA-Public Use
  Company Number: US-BRISTOL-MYERS SQUIBB COMPANY-14158018

PATIENT
  Age: 45 Year
  Sex: Female
  Weight: 84 kg

DRUGS (4)
  1. AVAPRO [Suspect]
     Indication: HYPERTENSION
  2. PRAVACHOL [Concomitant]
  3. CLARITIN [Concomitant]
  4. MINOCYCLINE HCL [Concomitant]

REACTIONS (1)
  - BLOOD PRESSURE INCREASED [None]
